FAERS Safety Report 21815689 (Version 1)
Quarter: 2023Q1

REPORT INFORMATION
  Report Type: Spontaneous
  Country: US (occurrence: None)
  Receive Date: 20230103
  Receipt Date: 20230103
  Transmission Date: 20230418
  Serious: No
  Sender: FDA-Public Use
  Company Number: None

PATIENT
  Age: 55 Year
  Sex: Female
  Weight: 145.15 kg

DRUGS (22)
  1. IBRANCE [Suspect]
     Active Substance: PALBOCICLIB
     Dosage: 125MG 21D OF 28DAYS ORAL?
     Route: 048
  2. AMLODIPINE [Concomitant]
     Active Substance: AMLODIPINE BESYLATE
  3. ANASTROZOLE [Concomitant]
     Active Substance: ANASTROZOLE
  4. CYCLOBENZAPRINE [Concomitant]
     Active Substance: CYCLOBENZAPRINE
  5. GABAPENTIN [Concomitant]
     Active Substance: GABAPENTIN
  6. LORATADINE [Concomitant]
     Active Substance: LORATADINE
  7. METFORMIN [Concomitant]
     Active Substance: METFORMIN HYDROCHLORIDE
  8. MORHPHINE [Concomitant]
  9. NYSTATIN [Concomitant]
  10. OZEMPIC [Concomitant]
     Active Substance: SEMAGLUTIDE
  11. PEPCID [Concomitant]
     Active Substance: FAMOTIDINE
  12. POTASSIUM CHLORIDE [Concomitant]
     Active Substance: POTASSIUM CHLORIDE
  13. SENNA LAXATIVE [Concomitant]
     Active Substance: SENNOSIDES
  14. SUCRALFATE [Concomitant]
     Active Substance: SUCRALFATE
  15. TRADJENTA [Concomitant]
     Active Substance: LINAGLIPTIN
  16. TRESIBA [Concomitant]
     Active Substance: INSULIN DEGLUDEC
  17. TROSPIUM CHLORIDE [Concomitant]
     Active Substance: TROSPIUM CHLORIDE
  18. VITAMIN C [Concomitant]
     Active Substance: ASCORBIC ACID
  19. VITAMIN D3 [Concomitant]
     Active Substance: CHOLECALCIFEROL
  20. XARELTO [Concomitant]
     Active Substance: RIVAROXABAN
  21. ZINC [Concomitant]
     Active Substance: ZINC
  22. ZOLOFT [Concomitant]
     Active Substance: SERTRALINE HYDROCHLORIDE

REACTIONS (1)
  - Full blood count abnormal [None]
